FAERS Safety Report 7620867-3 (Version None)
Quarter: 2011Q3

REPORT INFORMATION
  Report Type: 
  Country: None (occurrence: None)
  Receive Date: 20110719
  Receipt Date: 20110711
  Transmission Date: 20111222
  Serious: Yes (Life-Threatening, Other)
  Sender: FDA-Public Use
  Company Number: GB-ABBOTT-11P-167-0838578-00

PATIENT
  Age: 38 Year
  Sex: Male
  Weight: 78 kg

DRUGS (1)
  1. ZEMPLAR [Suspect]
     Indication: HYPERPARATHYROIDISM TERTIARY
     Dosage: 12MCG DAILY, 4MCG, 3 IN 1 DAY
     Route: 048
     Dates: start: 20110314, end: 20110509

REACTIONS (1)
  - BLOOD POTASSIUM INCREASED [None]
